FAERS Safety Report 5201938-8 (Version None)
Quarter: 2007Q1

REPORT INFORMATION
  Report Type: 
  Country: None (occurrence: None)
  Receive Date: 20070104
  Receipt Date: 20061222
  Transmission Date: 20070707
  Serious: Yes (Death, Hospitalization, Congenital Anomaly, Other)
  Sender: FDA-Public Use
  Company Number: 151265ISR

PATIENT
  Sex: Female

DRUGS (4)
  1. FLUOXETINE [Suspect]
     Indication: ANXIETY
     Dates: start: 20060914
  2. FLUOXETINE [Suspect]
     Indication: PANIC REACTION
     Dates: start: 20060914
  3. SERTRALINE HCL [Suspect]
     Indication: ANXIETY
     Dosage: 50 MG (50 MG, 1 IN 1 D)
     Route: 048
     Dates: start: 20060323, end: 20060914
  4. SERTRALINE HCL [Suspect]
     Indication: DEPRESSION
     Dosage: 50 MG (50 MG, 1 IN 1 D)
     Route: 048
     Dates: start: 20060323, end: 20060914

REACTIONS (5)
  - CAESAREAN SECTION [None]
  - CONGENITAL BRAIN DAMAGE [None]
  - DRUG EXPOSURE DURING PREGNANCY [None]
  - ENCEPHALITIS [None]
  - NEONATAL ASPHYXIA [None]
